FAERS Safety Report 23954123 (Version 1)
Quarter: 2024Q2

REPORT INFORMATION
  Report Type: Spontaneous
  Country: DK (occurrence: DK)
  Receive Date: 20240609
  Receipt Date: 20240609
  Transmission Date: 20240716
  Serious: Yes (Hospitalization, Other)
  Sender: FDA-Public Use
  Company Number: DK-NOVOPROD-1230772

PATIENT
  Age: 65 Year
  Sex: Female
  Weight: 95 kg

DRUGS (2)
  1. WEGOVY [Suspect]
     Active Substance: SEMAGLUTIDE
     Indication: Product used for unknown indication
     Dosage: UNK
     Dates: start: 202402
  2. WEGOVY [Suspect]
     Active Substance: SEMAGLUTIDE
     Indication: Product used for unknown indication
     Dosage: 0.5 MG, QD

REACTIONS (12)
  - Decreased appetite [Unknown]
  - Coma hepatic [Unknown]
  - Hepatic steatosis [Unknown]
  - Anaemia [Unknown]
  - Parkinson^s disease [Unknown]
  - Central nervous system infection [Recovered/Resolved]
  - Fall [Unknown]
  - Clostridium bacteraemia [Unknown]
  - Epistaxis [Unknown]
  - Pyrexia [Unknown]
  - Heart rate decreased [Unknown]
  - Inappropriate schedule of product administration [Unknown]

NARRATIVE: CASE EVENT DATE: 20240414
